FAERS Safety Report 9202339 (Version 1)
Quarter: 2013Q2

REPORT INFORMATION
  Report Type: Spontaneous
  Country: CZ (occurrence: CZ)
  Receive Date: 20130401
  Receipt Date: 20130401
  Transmission Date: 20140414
  Serious: Yes (Life-Threatening, Hospitalization)
  Sender: FDA-Public Use
  Company Number: PHHY2013CZ031263

PATIENT
  Age: 85 Year
  Sex: Male

DRUGS (11)
  1. SOTAHEXAL [Suspect]
     Dosage: 80 MG, TID
     Route: 048
     Dates: end: 20130225
  2. FURON [Concomitant]
  3. LARUS [Concomitant]
  4. SANGONA [Concomitant]
  5. EUTHYROX [Concomitant]
  6. MUCOSOLVAN [Concomitant]
  7. AUGMENTIN [Concomitant]
  8. HYDROCORTISON [Concomitant]
  9. VENTOLIN [Concomitant]
  10. ATROVENT [Concomitant]
  11. ANOPYRIN [Concomitant]

REACTIONS (3)
  - Cough [Unknown]
  - Ventricular fibrillation [Unknown]
  - Dyspnoea [Unknown]
